FAERS Safety Report 21663353 (Version 8)
Quarter: 2025Q1

REPORT INFORMATION
  Report Type: Spontaneous
  Country: US (occurrence: US)
  Receive Date: 20221130
  Receipt Date: 20250113
  Transmission Date: 20250409
  Serious: Yes (Other)
  Sender: PFIZER
  Company Number: US-PFIZER INC-PV202200113099

PATIENT
  Age: 73 Year
  Sex: Female
  Weight: 103.42 kg

DRUGS (1)
  1. PREMARIN [Suspect]
     Active Substance: ESTROGENS, CONJUGATED
     Indication: Vulvovaginal dryness
     Dosage: 1 APPLICATOR TWICE WEEKLY REFILL 3 TIMES

REACTIONS (1)
  - Cataract [Unknown]
